FAERS Safety Report 4970327-3 (Version None)
Quarter: 2006Q2

REPORT INFORMATION
  Report Type: 
  Country: None (occurrence: None)
  Receive Date: 20060406
  Receipt Date: 20060316
  Transmission Date: 20061013
  Serious: Yes (Hospitalization, Other)
  Sender: FDA-Public Use
  Company Number: USA041285901

PATIENT
  Age: 66 Year
  Sex: Male

DRUGS (4)
  1. LISPRO REGLISPRO (LISPRO LISPRO) PEN, DISPOSABLE [Suspect]
     Indication: DIABETES MELLITUS INSULIN-DEPENDENT
     Dates: start: 20010501
  2. LANTUS [Concomitant]
  3. HYDROCHLOROTHIAZIDE [Concomitant]
  4. HUMALOG PEN [Concomitant]

REACTIONS (2)
  - PANCREATIC CARCINOMA [None]
  - PHARMACEUTICAL PRODUCT COMPLAINT [None]
